FAERS Safety Report 14306532 (Version 1)
Quarter: 2017Q4

REPORT INFORMATION
  Report Type: Spontaneous
  Country: LB (occurrence: LB)
  Receive Date: 20171220
  Receipt Date: 20171220
  Transmission Date: 20180321
  Serious: Yes (Other)
  Sender: FDA-Public Use
  Company Number: LB-ABBVIE-17K-093-2198493-00

PATIENT
  Sex: Male

DRUGS (1)
  1. HUMIRA [Suspect]
     Active Substance: ADALIMUMAB
     Indication: CROHN^S DISEASE
     Route: 058

REACTIONS (5)
  - General physical health deterioration [Unknown]
  - Mouth ulceration [Unknown]
  - Oesophageal ulcer [Unknown]
  - C-reactive protein increased [Unknown]
  - Epstein-Barr virus test positive [Unknown]
